FAERS Safety Report 5490707-X (Version None)
Quarter: 2007Q4

REPORT INFORMATION
  Report Type: 
  Country: None (occurrence: None)
  Receive Date: 20071019
  Receipt Date: 20071017
  Transmission Date: 20080405
  Serious: Yes (Hospitalization)
  Sender: FDA-Public Use
  Company Number: A0651262A

PATIENT
  Age: 55 Year
  Sex: Female
  Weight: 69 kg

DRUGS (9)
  1. SERETIDE [Suspect]
     Indication: ASTHMA
     Route: 055
     Dates: start: 20020101
  2. BAMIFYLLINE HYDROCHLORIDE [Concomitant]
     Dates: start: 20020101
  3. TERBUTALINE SULFATE [Concomitant]
     Dates: start: 20020101
  4. PREDNISONE [Concomitant]
     Dates: start: 20020101
  5. VERAPAMIL HYDROCHLORIDE [Concomitant]
     Dates: start: 19970101
  6. PROPATYLNITRATE [Concomitant]
     Dates: start: 19970101
  7. HYDROCHLOROTHIAZIDE [Concomitant]
     Dates: start: 19970101
  8. FLUOXETINE [Concomitant]
     Dates: start: 19970101
  9. BROMAZEPAM [Concomitant]
     Dates: start: 19970101

REACTIONS (6)
  - ASTHMATIC CRISIS [None]
  - CHEST PAIN [None]
  - COUGH [None]
  - DRUG INEFFECTIVE [None]
  - DYSPNOEA [None]
  - SYNCOPE [None]
